FAERS Safety Report 12534172 (Version 1)
Quarter: 2016Q3

REPORT INFORMATION
  Report Type: Spontaneous
  Country: US (occurrence: US)
  Receive Date: 20160706
  Receipt Date: 20160706
  Transmission Date: 20161109
  Serious: No
  Sender: FDA-Public Use
  Company Number: US-PURDUE-USA-2016-0130545

PATIENT
  Sex: Female

DRUGS (3)
  1. BUTRANS [Suspect]
     Active Substance: BUPRENORPHINE
     Indication: PRODUCT USED FOR UNKNOWN INDICATION
     Dosage: 15 MCG/HR, WEEKLY
     Route: 062
     Dates: start: 20151231
  2. LYRICA [Suspect]
     Active Substance: PREGABALIN
     Indication: PRODUCT USED FOR UNKNOWN INDICATION
     Dosage: 100 MG, BID
     Route: 048
     Dates: start: 20151231
  3. LYRICA [Suspect]
     Active Substance: PREGABALIN
     Dosage: 50 MG, TID
     Route: 048
     Dates: start: 20151231

REACTIONS (15)
  - Insomnia [Unknown]
  - Anxiety [Unknown]
  - Night sweats [Unknown]
  - Stress [Unknown]
  - Discomfort [Unknown]
  - Heart rate irregular [Unknown]
  - Muscle spasms [Unknown]
  - Back pain [Unknown]
  - Hyperhidrosis [Unknown]
  - Neck pain [Unknown]
  - Chills [Unknown]
  - Fatigue [Unknown]
  - Arthralgia [Unknown]
  - Activities of daily living impaired [Unknown]
  - Depression [Unknown]
